FAERS Safety Report 11203546 (Version 1)
Quarter: 2015Q2

REPORT INFORMATION
  Report Type: Report from Study
  Country: CN (occurrence: CN)
  Receive Date: 20150619
  Receipt Date: 20150619
  Transmission Date: 20150821
  Serious: Yes (Hospitalization)
  Sender: FDA-Public Use
  Company Number: PHHO2015CN009242

PATIENT
  Age: 32 Year
  Sex: Female
  Weight: 45 kg

DRUGS (3)
  1. LDK378 [Suspect]
     Active Substance: CERITINIB
     Dosage: 600 MG, QD
     Route: 048
     Dates: start: 20150530
  2. VITAMINS [Concomitant]
     Active Substance: VITAMINS
     Indication: SUPPORTIVE CARE
     Dosage: 1 PILL, QD
     Route: 048
     Dates: start: 20150314
  3. LDK378 [Suspect]
     Active Substance: CERITINIB
     Indication: NON-SMALL CELL LUNG CANCER
     Dosage: 750 MG, QD
     Route: 048
     Dates: start: 20150424

REACTIONS (1)
  - Abdominal distension [Recovering/Resolving]

NARRATIVE: CASE EVENT DATE: 20150508
